FAERS Safety Report 8215677-2 (Version None)
Quarter: 2012Q1

REPORT INFORMATION
  Report Type: 
  Country: None (occurrence: None)
  Receive Date: 20120313
  Receipt Date: 20120220
  Transmission Date: 20120608
  Serious: Yes (Other)
  Sender: FDA-Public Use
  Company Number: CF 1797995

PATIENT
  Sex: Male

DRUGS (2)
  1. BLINK TEARS LUBRICATING EYE DROPS [Suspect]
     Indication: DRY EYE
     Dosage: 1 DROP IN EYE AS NEEDED
     Dates: start: 20111101, end: 20120220
  2. TOBRADEX, PATADAY [Concomitant]

REACTIONS (8)
  - EYELID OEDEMA [None]
  - EYE INFECTION [None]
  - BLEPHARITIS [None]
  - EYE IRRITATION [None]
  - EYELID INFECTION [None]
  - HYPERSENSITIVITY [None]
  - EYELID IRRITATION [None]
  - EYELIDS PRURITUS [None]
